FAERS Safety Report 10247737 (Version 1)
Quarter: 2014Q2

REPORT INFORMATION
  Report Type: Spontaneous
  Country: US (occurrence: US)
  Receive Date: 20140619
  Receipt Date: 20140619
  Transmission Date: 20141212
  Serious: No
  Sender: FDA-Public Use
  Company Number: US-BAYER-2014-082513

PATIENT
  Age: 14 Year
  Sex: Female
  Weight: 61 kg

DRUGS (2)
  1. ALEVE TABLET [Suspect]
     Indication: BONE SWELLING
     Dosage: 3 DF, WITHIN SIX HOURS
     Route: 048
     Dates: start: 20140530
  2. ALEVE TABLET [Suspect]
     Indication: PAIN

REACTIONS (3)
  - Inappropriate schedule of drug administration [None]
  - Intentional product misuse [None]
  - Drug ineffective [None]
